FAERS Safety Report 9705272 (Version 3)
Quarter: 2014Q1

REPORT INFORMATION
  Report Type: Report from Study
  Country: JP (occurrence: JP)
  Receive Date: 20131122
  Receipt Date: 20140306
  Transmission Date: 20141002
  Serious: Yes (Death, Hospitalization)
  Sender: FDA-Public Use
  Company Number: JP-SA-THYM-1001545

PATIENT
  Age: 54 Year
  Sex: Male
  Weight: 60 kg

DRUGS (27)
  1. THYMOGLOBULINE [Suspect]
     Indication: BONE MARROW CONDITIONING REGIMEN
     Route: 042
     Dates: start: 20091018, end: 20091019
  2. FLUDARABINE PHOSPHATE [Concomitant]
     Indication: BONE MARROW CONDITIONING REGIMEN
     Dosage: UNK
     Dates: start: 20091013, end: 20091018
  3. CYTARABINE [Concomitant]
     Indication: BONE MARROW CONDITIONING REGIMEN
     Dosage: UNK
     Dates: start: 20091014, end: 20091015
  4. BUSULFAN [Concomitant]
     Indication: BONE MARROW CONDITIONING REGIMEN
     Dosage: UNK
     Dates: start: 20091016, end: 20091017
  5. METHYLPREDNISOLONE SODIUM SUCCINATE [Concomitant]
     Indication: PROPHYLAXIS AGAINST GRAFT VERSUS HOST DISEASE
     Dosage: UNK
     Dates: start: 20091018, end: 20091119
  6. GRANISETRON HYDROCHLORIDE [Concomitant]
     Indication: PROPHYLAXIS OF NAUSEA AND VOMITING
     Dosage: UNK
     Dates: start: 20091013, end: 20091019
  7. SODIUM VALPROATE [Concomitant]
     Indication: CONVULSION PROPHYLAXIS
     Dosage: UNK
     Dates: start: 20091015, end: 20091018
  8. ACICLOVIR [Concomitant]
     Indication: INFECTION PROPHYLAXIS
     Dosage: UNK
     Dates: start: 20091013, end: 20091214
  9. FLUCONAZOLE [Concomitant]
     Indication: INFECTION PROPHYLAXIS
     Dosage: UNK
     Dates: start: 20091009, end: 20091018
  10. SULFAMETHOPRIM [Concomitant]
     Indication: INFECTION PROPHYLAXIS
     Dosage: UNK
     Dates: end: 20091018
  11. ITRACONAZOLE [Concomitant]
     Indication: INFECTION PROPHYLAXIS
     Dosage: UNK
     Dates: start: 20091017, end: 20091214
  12. BLOOD AND RELATED PRODUCTS [Concomitant]
     Indication: PROPHYLAXIS
     Dosage: UNK
     Dates: start: 20091020, end: 20091020
  13. PREDNISOLONE [Concomitant]
     Indication: PROPHYLAXIS AGAINST GRAFT VERSUS HOST DISEASE
     Dosage: UNK
     Dates: start: 20091120, end: 20091214
  14. TACROLIMUS [Concomitant]
     Indication: PROPHYLAXIS AGAINST GRAFT VERSUS HOST DISEASE
     Dosage: TACROLIMUS HYDRATE
     Dates: start: 20091019, end: 20091214
  15. TROXIPIDE [Concomitant]
     Indication: GASTRITIS PROPHYLAXIS
     Dosage: UNK
     Dates: end: 20091214
  16. URSODEOXYCHOLIC ACID [Concomitant]
     Indication: PROPHYLAXIS
     Dosage: UNK
     Dates: start: 20091007, end: 20091214
  17. OMEPRAZOLE [Concomitant]
     Indication: GASTRITIS PROPHYLAXIS
     Dosage: UNK
     Dates: end: 20091214
  18. BENIDIPINE HYDROCHLORIDE [Concomitant]
     Indication: HYPERTENSION
     Dosage: UNK
     Dates: end: 20091214
  19. TOSUFLOXACIN TOSILATE [Concomitant]
     Indication: INFECTION PROPHYLAXIS
     Dosage: UNK
     Dates: start: 20091002, end: 20091214
  20. ANTIBIOTICS-RESISTANT LACTIC ACID BACTERIAE [Concomitant]
     Indication: GASTROINTESTINAL DISORDER
     Dosage: UNK
     Dates: end: 20091214
  21. DALTEPARIN SODIUM [Concomitant]
     Indication: PROPHYLAXIS
     Dosage: UNK
     Dates: start: 20091008, end: 20091118
  22. FIRSTCIN [Concomitant]
     Indication: PYREXIA
     Dosage: UNK
     Dates: start: 20091015, end: 20091019
  23. FIRSTCIN [Concomitant]
     Indication: PYREXIA
     Dates: start: 20091210, end: 20091212
  24. HUMULIN R [Concomitant]
     Indication: PROPHYLAXIS
     Dosage: UNK
     Dates: start: 20091021, end: 20091124
  25. AMIKACIN SULFATE [Concomitant]
     Indication: PYREXIA
     Dosage: UNK
     Dates: start: 20091016, end: 20091105
  26. MEROPENEM TRIHYDRATE [Concomitant]
     Indication: PYREXIA
     Dosage: UNK
     Dates: start: 20091019, end: 20091107
  27. PLATELETS, HUMAN BLOOD [Concomitant]
     Indication: HAEMORRHAGE PROPHYLAXIS
     Dosage: UNK
     Dates: start: 20091024, end: 20091211

REACTIONS (9)
  - Haemoglobin decreased [Not Recovered/Not Resolved]
  - Cytomegalovirus viraemia [Not Recovered/Not Resolved]
  - Staphylococcal sepsis [Not Recovered/Not Resolved]
  - White blood cell count decreased [Not Recovered/Not Resolved]
  - Platelet count decreased [Not Recovered/Not Resolved]
  - Diffuse large B-cell lymphoma recurrent [Fatal]
  - Hypophosphataemia [Recovering/Resolving]
  - Hepatic enzyme increased [Not Recovered/Not Resolved]
  - Hypokalaemia [Not Recovered/Not Resolved]
